FAERS Safety Report 9491047 (Version 1)
Quarter: 2013Q3

REPORT INFORMATION
  Report Type: Spontaneous
  Country: US (occurrence: US)
  Receive Date: 20130830
  Receipt Date: 20130830
  Transmission Date: 20140515
  Serious: No
  Sender: FDA-Public Use
  Company Number: US-PFIZER INC-2013248670

PATIENT
  Age: 60 Year
  Sex: Male
  Weight: 102 kg

DRUGS (6)
  1. NORVASC [Suspect]
     Indication: HYPERTENSION
     Dosage: 10 MG, 1X/DAY
  2. PRISTIQ [Suspect]
     Indication: DEPRESSION
     Dosage: 100 MG, 1X/DAY
     Route: 048
     Dates: start: 201208
  3. ZOCOR [Concomitant]
     Indication: BLOOD CHOLESTEROL INCREASED
     Dosage: 10 MG, 1X/DAY
  4. METFORMIN [Concomitant]
     Indication: DIABETES MELLITUS
     Dosage: 500 MG, 2X/DAY
  5. LISINOPRIL [Concomitant]
     Dosage: 10 MG, 1X/DAY
  6. ASPIRINA [Concomitant]
     Dosage: 81 MG, 1X/DAY

REACTIONS (1)
  - Blood pressure increased [Unknown]
